FAERS Safety Report 7390524-X (Version None)
Quarter: 2011Q2

REPORT INFORMATION
  Report Type: 
  Country: None (occurrence: None)
  Receive Date: 20110402
  Receipt Date: 20110325
  Transmission Date: 20111010
  Serious: Yes (Hospitalization)
  Sender: FDA-Public Use
  Company Number: US-AMGEN-USASP2011016206

PATIENT
  Age: 60 Year
  Sex: Female

DRUGS (1)
  1. ENBREL [Suspect]
     Indication: RHEUMATOID ARTHRITIS
     Dosage: 50 MG, QWK
     Dates: start: 20060601

REACTIONS (7)
  - RENAL MASS [None]
  - UMBILICAL HERNIA [None]
  - RHEUMATOID ARTHRITIS [None]
  - BLADDER CANCER [None]
  - SWELLING [None]
  - EAR INFECTION [None]
  - STAPHYLOCOCCAL INFECTION [None]
